FAERS Safety Report 11192643 (Version 1)
Quarter: 2015Q2

REPORT INFORMATION
  Report Type: Spontaneous
  Country: SE (occurrence: SE)
  Receive Date: 20150616
  Receipt Date: 20150616
  Transmission Date: 20150821
  Serious: Yes (Hospitalization)
  Sender: FDA-Public Use
  Company Number: SE-SA-2015SA080644

PATIENT
  Age: 43 Year
  Sex: Male

DRUGS (1)
  1. STILNOCT [Suspect]
     Active Substance: ZOLPIDEM TARTRATE
     Indication: SLEEP DISORDER
     Route: 065

REACTIONS (5)
  - Intentional product misuse [Unknown]
  - Altered state of consciousness [Unknown]
  - Poisoning [Unknown]
  - Somnambulism [Unknown]
  - Road traffic accident [Unknown]
